FAERS Safety Report 9477031 (Version 2)
Quarter: 2013Q3

REPORT INFORMATION
  Report Type: Spontaneous
  Country: DE (occurrence: DE)
  Receive Date: 20130826
  Receipt Date: 20130915
  Transmission Date: 20140515
  Serious: Yes (Other)
  Sender: FDA-Public Use
  Company Number: DE-PFIZER INC-2013242111

PATIENT
  Age: 61 Year
  Sex: Male
  Weight: 90 kg

DRUGS (1)
  1. TORISEL [Suspect]
     Indication: METASTATIC RENAL CELL CARCINOMA
     Dosage: 25 MG, WEEKLY

REACTIONS (2)
  - Pulmonary fibrosis [Unknown]
  - Hypophosphataemia [Unknown]
